FAERS Safety Report 8813411 (Version 1)
Quarter: 2012Q4

REPORT INFORMATION
  Report Type: 
  Country: US (occurrence: US)
  Receive Date: 20120927
  Receipt Date: 20120927
  Transmission Date: 20130627
  Serious: No
  Sender: FDA-Public Use
  Company Number: US-AMGEN-USASP2012046445

PATIENT
  Age: 52 Year
  Sex: Female
  Weight: 71.66 kg

DRUGS (6)
  1. PROLIA [Suspect]
     Indication: OSTEOPOROSIS POSTMENOPAUSAL
     Dosage: 60 mg, q6mo
     Route: 058
     Dates: start: 20120618
  2. TRAMADOL [Concomitant]
     Dosage: UNK
  3. NUCYNTA [Concomitant]
     Dosage: UNK
  4. ESTRADIOL [Concomitant]
  5. TAPENTADOL [Concomitant]
  6. OMEPRAZOLE [Concomitant]

REACTIONS (9)
  - Fall [Not Recovered/Not Resolved]
  - Skeletal injury [Not Recovered/Not Resolved]
  - Musculoskeletal chest pain [Not Recovered/Not Resolved]
  - Local swelling [Not Recovered/Not Resolved]
  - Joint swelling [Not Recovered/Not Resolved]
  - Abdominal distension [Unknown]
  - Abdominal pain upper [Unknown]
  - Swelling [Not Recovered/Not Resolved]
  - Weight increased [Not Recovered/Not Resolved]
